FAERS Safety Report 11713979 (Version 1)
Quarter: 2015Q4

REPORT INFORMATION
  Report Type: Spontaneous
  Country: CN (occurrence: CN)
  Receive Date: 20151109
  Receipt Date: 20151109
  Transmission Date: 20160304
  Serious: Yes (Other)
  Sender: FDA-Public Use
  Company Number: CN-009507513-1510CHN011280

PATIENT
  Age: 66 Year
  Sex: Male

DRUGS (1)
  1. ELOSON [Suspect]
     Active Substance: MOMETASONE
     Indication: ECZEMA
     Dosage: APPLIED ON AFFECTED SITE ONCE PER DAY BEFORE BEDTIME
     Route: 061
     Dates: start: 20150508, end: 20150510

REACTIONS (1)
  - Hypersensitivity [Recovering/Resolving]

NARRATIVE: CASE EVENT DATE: 20150509
